FAERS Safety Report 13391269 (Version 1)
Quarter: 2017Q1

REPORT INFORMATION
  Report Type: Spontaneous
  Country: DE (occurrence: DE)
  Receive Date: 20170331
  Receipt Date: 20170331
  Transmission Date: 20170429
  Serious: Yes (Hospitalization, Other)
  Sender: FDA-Public Use
  Company Number: DE-UCBSA-2017011937

PATIENT
  Age: 31 Year
  Sex: Male
  Weight: 130 kg

DRUGS (23)
  1. TAVOR (LORAZEPAM) [Suspect]
     Active Substance: LORAZEPAM
     Indication: PRODUCT USED FOR UNKNOWN INDICATION
     Dosage: 0.5 MG, TOTAL
     Route: 048
     Dates: start: 20170325, end: 20170325
  2. APYDAN [Suspect]
     Active Substance: OXCARBAZEPINE
     Indication: PRODUCT USED FOR UNKNOWN INDICATION
     Dosage: UNK
  3. CIATYL-Z [Suspect]
     Active Substance: ZUCLOPENTHIXOL
     Indication: PRODUCT USED FOR UNKNOWN INDICATION
     Dosage: UNK
  4. ZOPICLON [Concomitant]
     Active Substance: ZOPICLONE
     Indication: PRODUCT USED FOR UNKNOWN INDICATION
  5. EUPHYLONG [Suspect]
     Active Substance: THEOPHYLLINE ANHYDROUS
     Indication: PRODUCT USED FOR UNKNOWN INDICATION
     Dosage: 500 MG, (2 CAPSULES OF 250 MG)
     Route: 048
     Dates: start: 20170325, end: 20170325
  6. LYRICA [Suspect]
     Active Substance: PREGABALIN
     Indication: PRODUCT USED FOR UNKNOWN INDICATION
     Dosage: 150 MG, (1 CAPSULE OD 150 MG)
     Route: 048
     Dates: start: 20170325, end: 20170325
  7. CANDESARTAN [Suspect]
     Active Substance: CANDESARTAN
     Indication: PRODUCT USED FOR UNKNOWN INDICATION
     Dosage: 4 MG, (1 TABLET OF 4 MG)
     Route: 048
     Dates: start: 20170325, end: 20170325
  8. CLOZAPIN [Concomitant]
     Active Substance: CLOZAPINE
     Indication: PRODUCT USED FOR UNKNOWN INDICATION
     Dosage: UNK
  9. PANTOZOL [Suspect]
     Active Substance: PANTOPRAZOLE SODIUM
     Indication: PRODUCT USED FOR UNKNOWN INDICATION
     Dosage: 40 MG, (1 TABLET OF 40 MG)
     Route: 048
     Dates: start: 20170325, end: 20170325
  10. ZELDOX [Suspect]
     Active Substance: ZIPRASIDONE
     Indication: PRODUCT USED FOR UNKNOWN INDICATION
     Dosage: 40 MG, (1 TABLET OF 40 MG)
     Route: 048
     Dates: start: 20170325, end: 20170325
  11. LORAZEPAM. [Suspect]
     Active Substance: LORAZEPAM
     Indication: PRODUCT USED FOR UNKNOWN INDICATION
     Dosage: UNK
  12. LORAZEPAM. [Suspect]
     Active Substance: LORAZEPAM
     Dosage: 1 MG, (1 TABLET OF 1 MG)
     Route: 048
     Dates: start: 20170325, end: 20170325
  13. VIMPAT [Suspect]
     Active Substance: LACOSAMIDE
     Indication: PRODUCT USED FOR UNKNOWN INDICATION
     Dosage: UNK
  14. VIMPAT [Suspect]
     Active Substance: LACOSAMIDE
     Dosage: 300 MG, (2 TABLETS: 200 MG + 100 MG)
     Route: 048
     Dates: start: 20170325, end: 20170325
  15. XELEVIA [Suspect]
     Active Substance: SITAGLIPTIN PHOSPHATE
     Indication: PRODUCT USED FOR UNKNOWN INDICATION
     Dosage: 100 MG, (1 TABLET OF 100 MG)
     Route: 048
     Dates: start: 20170325, end: 20170325
  16. SODIUM CHLORIDE. [Suspect]
     Active Substance: SODIUM CHLORIDE
     Indication: PRODUCT USED FOR UNKNOWN INDICATION
     Dosage: UNK
  17. ORFIRIL [Suspect]
     Active Substance: VALPROIC ACID
     Indication: PRODUCT USED FOR UNKNOWN INDICATION
     Dosage: 600 MG, (2 TABLETS OF 300 MG)
     Route: 048
     Dates: start: 20170325, end: 20170325
  18. APYDAN [Suspect]
     Active Substance: OXCARBAZEPINE
     Dosage: 600 MG, (1 TABLET OF 600 MG)
     Route: 048
     Dates: start: 20170325, end: 20170325
  19. CIATYL-Z [Suspect]
     Active Substance: ZUCLOPENTHIXOL
     Dosage: 2 MG, (1 TABLET OF 2 MG)
     Route: 048
     Dates: start: 20170325, end: 20170325
  20. DIPIPERON [Suspect]
     Active Substance: PIPAMPERONE
     Indication: PRODUCT USED FOR UNKNOWN INDICATION
     Dosage: UNK
  21. DIPIPERON [Suspect]
     Active Substance: PIPAMPERONE
     Dosage: 80 MG, (2 TABLETS OF 40 MG)
     Route: 048
     Dates: start: 20170325, end: 20170325
  22. SODIUM CHLORIDE. [Suspect]
     Active Substance: SODIUM CHLORIDE
     Dosage: UNK
     Route: 048
     Dates: start: 20170325, end: 20170325
  23. LUMINAL [Concomitant]
     Active Substance: PHENOBARBITAL SODIUM
     Indication: PRODUCT USED FOR UNKNOWN INDICATION

REACTIONS (1)
  - Intentional product misuse [Unknown]

NARRATIVE: CASE EVENT DATE: 20170325
